FAERS Safety Report 5058261-4 (Version None)
Quarter: 2006Q2

REPORT INFORMATION
  Report Type: 
  Country: None (occurrence: None)
  Receive Date: 20060622
  Receipt Date: 20060209
  Transmission Date: 20061013
  Serious: Yes (Death)
  Sender: FDA-Public Use
  Company Number: US-JNJFOC-20060202472

PATIENT
  Sex: Male

DRUGS (1)
  1. DURAGESIC-100 [Suspect]
     Indication: DRUG USE FOR UNKNOWN INDICATION
     Dosage: 50 UG/HR

REACTIONS (2)
  - DEVICE FAILURE [None]
  - OVERDOSE [None]
